FAERS Safety Report 5498376-X (Version None)
Quarter: 2007Q4

REPORT INFORMATION
  Report Type: 
  Country: None (occurrence: None)
  Receive Date: 20071024
  Receipt Date: 20071012
  Transmission Date: 20080405
  Serious: Yes (Hospitalization)
  Sender: FDA-Public Use
  Company Number: 2007BI021832

PATIENT
  Age: 53 Year
  Sex: Female

DRUGS (1)
  1. NATALIZUMAB [Suspect]
     Indication: MULTIPLE SCLEROSIS
     Dosage: 300 MG; QM; IV
     Route: 042
     Dates: start: 20070911

REACTIONS (5)
  - CHILLS [None]
  - ERYTHEMA [None]
  - NAUSEA [None]
  - PYREXIA [None]
  - SOMNOLENCE [None]
